FAERS Safety Report 5504897-3 (Version None)
Quarter: 2007Q4

REPORT INFORMATION
  Report Type: 
  Country: None (occurrence: None)
  Receive Date: 20071031
  Receipt Date: 20071018
  Transmission Date: 20080405
  Serious: Yes (Hospitalization)
  Sender: FDA-Public Use
  Company Number: 2007BI016685

PATIENT
  Age: 46 Year
  Sex: Female
  Weight: 92.9874 kg

DRUGS (3)
  1. AVONEX [Suspect]
     Indication: MULTIPLE SCLEROSIS
     Dosage: 30 UG;QW;IM
     Route: 030
     Dates: start: 20060828
  2. AVONEX [Suspect]
     Indication: MULTIPLE SCLEROSIS
     Dosage: 30 UG;QW;IM
     Route: 030
     Dates: start: 20061001
  3. AVONEX [Suspect]

REACTIONS (7)
  - ARTHROPOD BITE [None]
  - BLISTER [None]
  - CROHN'S DISEASE [None]
  - ERYTHEMA [None]
  - PAIN [None]
  - SKIN REACTION [None]
  - WOUND INFECTION STAPHYLOCOCCAL [None]
